FAERS Safety Report 25965440 (Version 1)
Quarter: 2025Q4

REPORT INFORMATION
  Report Type: Spontaneous
  Country: US (occurrence: US)
  Receive Date: 20251027
  Receipt Date: 20251027
  Transmission Date: 20260118
  Serious: No
  Sender: SANOFI AVENTIS
  Company Number: US-SA-2025SA316536

PATIENT
  Sex: Female

DRUGS (11)
  1. DUPIXENT [Suspect]
     Active Substance: DUPILUMAB
     Indication: Asthma
     Dosage: 300 MG, QOW
     Route: 058
     Dates: start: 20250510
  2. ALBUTEROL SULFATE [Concomitant]
     Active Substance: ALBUTEROL SULFATE
  3. AMOXICILLIN\CLAVULANATE POTASSIUM [Concomitant]
     Active Substance: AMOXICILLIN\CLAVULANATE POTASSIUM
  4. AZITHROMYCIN [Concomitant]
     Active Substance: AZITHROMYCIN
  5. BENZONATATE [Concomitant]
     Active Substance: BENZONATATE
  6. CLOBETASOL PROPIONATE [Concomitant]
     Active Substance: CLOBETASOL PROPIONATE
  7. FLUTICASONE [Concomitant]
     Active Substance: FLUTICASONE
  8. FOLIC ACID [Concomitant]
     Active Substance: FOLIC ACID
  9. LEVALBUTEROL HYDROCHLORIDE [Concomitant]
     Active Substance: LEVALBUTEROL HYDROCHLORIDE
  10. METHYLPREDNISOLONE [Concomitant]
     Active Substance: METHYLPREDNISOLONE
  11. PREDNISONE [Concomitant]
     Active Substance: PREDNISONE

REACTIONS (1)
  - Therapeutic response decreased [Unknown]
